FAERS Safety Report 25725040 (Version 2)
Quarter: 2025Q3

REPORT INFORMATION
  Report Type: Spontaneous
  Country: EU (occurrence: EU)
  Receive Date: 20250826
  Receipt Date: 20250915
  Transmission Date: 20251021
  Serious: Yes (Hospitalization, Other)
  Sender: ALKEM
  Company Number: None

PATIENT
  Age: 45 Year
  Sex: Female

DRUGS (3)
  1. FOSFOMYCIN [Interacting]
     Active Substance: FOSFOMYCIN
     Indication: Prophylaxis urinary tract infection
     Route: 065
  2. FOSFOMYCIN [Interacting]
     Active Substance: FOSFOMYCIN
     Indication: Infection prophylaxis
  3. TACROLIMUS [Interacting]
     Active Substance: TACROLIMUS
     Indication: Immunosuppressant drug therapy
     Route: 065

REACTIONS (6)
  - Renal tubular acidosis [Recovered/Resolved]
  - Drug interaction [Unknown]
  - Immunosuppressant drug level increased [Recovered/Resolved]
  - Resting tremor [Recovered/Resolved]
  - Intention tremor [Recovered/Resolved]
  - Off label use [Unknown]
